FAERS Safety Report 6268389-9 (Version None)
Quarter: 2009Q3

REPORT INFORMATION
  Report Type: 
  Country: None (occurrence: None)
  Receive Date: 20090713
  Receipt Date: 20090713
  Transmission Date: 20100115
  Serious: Yes (Disabling, Other)
  Sender: FDA-Public Use
  Company Number: None

PATIENT
  Sex: Female
  Weight: 61.2356 kg

DRUGS (3)
  1. PAXIL [Suspect]
     Indication: ANXIETY
     Dosage: 60MG DAILY 20MG 3X DAILY ORAL
     Route: 048
     Dates: start: 20010301, end: 20071201
  2. PAXIL [Suspect]
     Indication: BIPOLAR I DISORDER
     Dosage: 60MG DAILY 20MG 3X DAILY ORAL
     Route: 048
     Dates: start: 20010301, end: 20071201
  3. LITHIUM CARBONATE [Concomitant]

REACTIONS (21)
  - ABDOMINAL DISTENSION [None]
  - ABDOMINAL PAIN UPPER [None]
  - AGORAPHOBIA [None]
  - ALTERED STATE OF CONSCIOUSNESS [None]
  - ANXIETY [None]
  - ASTHENIA [None]
  - DRUG WITHDRAWAL SYNDROME [None]
  - FATIGUE [None]
  - FRUSTRATION [None]
  - GASTROINTESTINAL MOTILITY DISORDER [None]
  - HALLUCINATION [None]
  - HYPERACUSIS [None]
  - INFLUENZA LIKE ILLNESS [None]
  - MEMORY IMPAIRMENT [None]
  - MENTAL DISORDER [None]
  - MIGRAINE [None]
  - NERVOUS SYSTEM DISORDER [None]
  - PARADOXICAL DRUG REACTION [None]
  - PHOTOPHOBIA [None]
  - SOCIAL AVOIDANT BEHAVIOUR [None]
  - VERTIGO [None]
